FAERS Safety Report 5420807-1 (Version None)
Quarter: 2007Q3

REPORT INFORMATION
  Report Type: 
  Country: None (occurrence: None)
  Receive Date: 20070821
  Receipt Date: 20070810
  Transmission Date: 20080115
  Serious: Yes (Hospitalization)
  Sender: FDA-Public Use
  Company Number: FR-AMGEN-US239237

PATIENT
  Age: 51 Year
  Sex: Male

DRUGS (2)
  1. ENBREL [Suspect]
     Indication: RHEUMATOID ARTHRITIS
     Dosage: LYOPHILIZED/50 MG 1 TIME PER WEEK
     Route: 058
     Dates: start: 20030501, end: 20070101
  2. ENBREL [Suspect]
     Route: 058
     Dates: start: 20070101

REACTIONS (1)
  - CYST [None]
